FAERS Safety Report 23132830 (Version 2)
Quarter: 2023Q4

REPORT INFORMATION
  Report Type: Spontaneous
  Country: JP (occurrence: JP)
  Receive Date: 20231101
  Receipt Date: 20231205
  Transmission Date: 20240110
  Serious: Yes (Hospitalization, Other)
  Sender: FDA-Public Use
  Company Number: JP-BRISTOL-MYERS SQUIBB COMPANY-2023-153695

PATIENT
  Age: 90 Year
  Sex: Female
  Weight: 42.1 kg

DRUGS (7)
  1. ELIQUIS [Suspect]
     Active Substance: APIXABAN
     Indication: Atrial fibrillation
     Route: 048
     Dates: start: 20160517, end: 20190222
  2. ELIQUIS [Suspect]
     Active Substance: APIXABAN
     Dates: start: 20190304
  3. BISOPROLOL FUMARATE [Concomitant]
     Active Substance: BISOPROLOL FUMARATE
     Indication: Atrial fibrillation
     Route: 048
     Dates: start: 20150418
  4. AMLODIPINE [Concomitant]
     Active Substance: AMLODIPINE BESYLATE
     Indication: Hypertension
     Dosage: AMLODIPINE OD
     Route: 048
     Dates: start: 20151117
  5. DIMEMORFAN PHOSPHATE [Concomitant]
     Active Substance: DIMEMORFAN PHOSPHATE
     Indication: Upper respiratory tract inflammation
     Route: 048
     Dates: start: 20150222, end: 20150225
  6. CARBOCYSTEINE [Concomitant]
     Active Substance: CARBOCYSTEINE
     Indication: Upper respiratory tract inflammation
     Route: 048
     Dates: start: 20150222, end: 20150225
  7. AZITHROMYCIN DIHYDRATE [Concomitant]
     Active Substance: AZITHROMYCIN DIHYDRATE
     Indication: Upper respiratory tract inflammation
     Dosage: AZITHROMYCIN HYDRATE (ZITHROMAC SR)
     Route: 048
     Dates: start: 20150222

REACTIONS (3)
  - Embolic stroke [Recovered/Resolved with Sequelae]
  - Treatment noncompliance [Unknown]
  - Influenza [Unknown]

NARRATIVE: CASE EVENT DATE: 20190215
